FAERS Safety Report 21206388 (Version 1)
Quarter: 2022Q3

REPORT INFORMATION
  Report Type: Spontaneous
  Country: CA (occurrence: CA)
  Receive Date: 20220812
  Receipt Date: 20220812
  Transmission Date: 20221027
  Serious: Yes (Other)
  Sender: FDA-Public Use
  Company Number: None

PATIENT
  Age: 73 Year
  Sex: Male

DRUGS (6)
  1. METHOTREXATE [Suspect]
     Active Substance: METHOTREXATE
     Indication: Product used for unknown indication
  2. ENBREL [Suspect]
     Active Substance: ETANERCEPT
     Indication: Product used for unknown indication
  3. SECUKINUMAB [Concomitant]
     Active Substance: SECUKINUMAB
  4. HYDROCHLOROTHIAZIDE [Concomitant]
     Active Substance: HYDROCHLOROTHIAZIDE
  5. RAMIPRIL [Concomitant]
     Active Substance: RAMIPRIL
  6. SULFASALAZINE [Concomitant]
     Active Substance: SULFASALAZINE

REACTIONS (1)
  - Hodgkin^s disease [Unknown]
